FAERS Safety Report 7916513-1 (Version None)
Quarter: 2011Q4

REPORT INFORMATION
  Report Type: 
  Country: None (occurrence: None)
  Receive Date: 20111116
  Receipt Date: 20101209
  Transmission Date: 20120403
  Serious: Yes (Hospitalization, Other)
  Sender: FDA-Public Use
  Company Number: US-BAYER-2011-110432

PATIENT
  Age: 71 Year
  Sex: Female

DRUGS (1)
  1. INTERFERON BETA-1B [Suspect]
     Indication: MULTIPLE SCLEROSIS
     Dosage: UNK
     Dates: start: 20080918, end: 20100520

REACTIONS (3)
  - HAEMATEMESIS [None]
  - EPIGASTRIC DISCOMFORT [None]
  - BRAIN NEOPLASM MALIGNANT [None]
